FAERS Safety Report 8170091-3 (Version None)
Quarter: 2012Q1

REPORT INFORMATION
  Report Type: 
  Country: None (occurrence: None)
  Receive Date: 20120228
  Receipt Date: 20120223
  Transmission Date: 20120608
  Serious: Yes (Other)
  Sender: FDA-Public Use
  Company Number: GB-PFIZER INC-2012049009

PATIENT
  Age: 50 Year
  Sex: Female

DRUGS (6)
  1. BISOPROLOL [Concomitant]
     Dosage: UNK
  2. VARENICLINE TARTRATE [Suspect]
     Dosage: 1 MG, 2X/DAY
     Route: 048
     Dates: end: 20120208
  3. OMEPRAZOLE [Concomitant]
     Dosage: UNK
  4. VARENICLINE TARTRATE [Suspect]
     Dosage: 0.5 MG, UNK
     Route: 048
     Dates: start: 20120117
  5. GLYCERYL TRINITRATE [Concomitant]
     Dosage: UNK
  6. ACETYLSALICYLIC ACID [Concomitant]
     Dosage: UNK

REACTIONS (6)
  - SUICIDAL IDEATION [None]
  - CRYING [None]
  - MOOD ALTERED [None]
  - PSYCHOMOTOR HYPERACTIVITY [None]
  - MOOD SWINGS [None]
  - FEELING OF DESPAIR [None]
